FAERS Safety Report 19946211 (Version 1)
Quarter: 2021Q4

REPORT INFORMATION
  Report Type: Spontaneous
  Country: CN (occurrence: CN)
  Receive Date: 20211013
  Receipt Date: 20211013
  Transmission Date: 20220303
  Serious: Yes (Hospitalization)
  Sender: FDA-Public Use
  Company Number: CN-ROCHE-2932275

PATIENT
  Age: 68 Year
  Sex: Female
  Weight: 45 kg

DRUGS (10)
  1. BEVACIZUMAB [Suspect]
     Active Substance: BEVACIZUMAB
     Indication: Colon cancer
     Route: 041
     Dates: start: 20210828, end: 20210828
  2. FLUOROURACIL [Suspect]
     Active Substance: FLUOROURACIL
     Indication: Colon cancer
     Route: 065
     Dates: start: 20210828, end: 20210829
  3. LEUCOVORIN CALCIUM [Suspect]
     Active Substance: LEUCOVORIN CALCIUM
     Indication: Colon cancer
     Route: 041
     Dates: start: 20210828, end: 20210828
  4. OXALIPLATIN [Suspect]
     Active Substance: OXALIPLATIN
     Indication: Colon cancer
     Route: 041
     Dates: start: 20210828, end: 20210828
  5. IRINOTECAN HYDROCHLORIDE [Suspect]
     Active Substance: IRINOTECAN HYDROCHLORIDE
     Indication: Colon cancer
     Route: 041
     Dates: start: 20210828, end: 20210828
  6. DEXTROSE [Concomitant]
     Active Substance: DEXTROSE
     Dosage: SOLVENT FOR  OXALIPLATIN FOR INJECTION
     Route: 041
     Dates: start: 20210828, end: 20210828
  7. DEXTROSE [Concomitant]
     Active Substance: DEXTROSE
     Dosage: SOLVENT FOR CALCIUM FOLINATE FOR INJECTION
     Route: 041
     Dates: start: 20210828, end: 20210828
  8. SODIUM CHLORIDE [Concomitant]
     Active Substance: SODIUM CHLORIDE
     Dosage: SOLVENT FOR  BEVACIZUMAB
     Route: 041
     Dates: start: 20210828, end: 20210828
  9. SODIUM CHLORIDE [Concomitant]
     Active Substance: SODIUM CHLORIDE
     Dosage: SOLVENT FOR FLUOROURACIL INJECTION
     Dates: start: 20210828, end: 20210829
  10. SODIUM CHLORIDE [Concomitant]
     Active Substance: SODIUM CHLORIDE
     Dosage: SOLVENT FOR IRINOTECAN HYDROCHLORIDE FOR INJECTION
     Route: 041
     Dates: start: 20210828, end: 20210828

REACTIONS (1)
  - Myelosuppression [Recovered/Resolved]

NARRATIVE: CASE EVENT DATE: 20210911
